FAERS Safety Report 11346016 (Version 1)
Quarter: 2015Q3

REPORT INFORMATION
  Report Type: Spontaneous
  Country: FR (occurrence: FR)
  Receive Date: 20150806
  Receipt Date: 20150806
  Transmission Date: 20151125
  Serious: Yes (Hospitalization)
  Sender: FDA-Public Use
  Company Number: FR-BAYER-2015-394070

PATIENT
  Age: 77 Year
  Sex: Male

DRUGS (5)
  1. XENETIX [Suspect]
     Active Substance: IOBITRIDOL
     Indication: ABDOMEN SCAN
  2. XENETIX [Suspect]
     Active Substance: IOBITRIDOL
     Indication: CHEST SCAN
  3. DALACINE [Concomitant]
     Active Substance: CLINDAMYCIN HYDROCHLORIDE
     Dosage: 4 DF, TID
     Route: 048
     Dates: start: 20150618, end: 20150618
  4. GADOVIST [Suspect]
     Active Substance: GADOBUTROL
     Indication: NUCLEAR MAGNETIC RESONANCE IMAGING SPINAL
     Dosage: 7.5 ML, ONCE
     Route: 042
     Dates: start: 20150617, end: 20150617
  5. XENETIX [Suspect]
     Active Substance: IOBITRIDOL
     Indication: COMPUTERISED TOMOGRAM PELVIS
     Dosage: UNK
     Route: 042
     Dates: start: 20150615, end: 20150615

REACTIONS (2)
  - Eosinophil count increased [Recovered/Resolved]
  - Rash maculo-papular [Recovered/Resolved]

NARRATIVE: CASE EVENT DATE: 20150618
